FAERS Safety Report 4708972-2 (Version None)
Quarter: 2005Q3

REPORT INFORMATION
  Report Type: 
  Country: None (occurrence: None)
  Receive Date: 20050705
  Receipt Date: 20050622
  Transmission Date: 20060218
  Serious: Yes (Death)
  Sender: FDA-Public Use
  Company Number: 2005092061

PATIENT
  Age: 77 Year
  Sex: Male

DRUGS (22)
  1. ATORVASTATIN CALCIUM [Suspect]
     Indication: ILL-DEFINED DISORDER
     Dosage: 10 M G
  2. NITROGLICERINA (GLYCERYL TRINITRATE) [Suspect]
     Indication: ILL-DEFINED DISORDER
  3. SPIRONOLACTONE [Suspect]
     Indication: ILL-DEFINED DISORDER
     Dosage: 50 MG
  4. FRUMIL (FUROSEMIDE, AMILORIDE) [Suspect]
     Indication: ILL-DEFINED DISORDER
  5. FUROSEMIDE [Suspect]
     Indication: ILL-DEFINED DISORDER
     Dosage: 80 MG
  6. LEVOMEPROMAZINE (LEVOMEPROMAZINE) [Suspect]
     Indication: ILL-DEFINED DISORDER
     Dosage: 100 MG
  7. IPRATROPIUM BROMIDE [Suspect]
     Indication: ILL-DEFINED DISORDER
     Dosage: 4 TIMES A DAY, INHALATION
     Route: 055
  8. SPIRIVA [Suspect]
     Indication: ILL-DEFINED DISORDER
     Dosage: 18 UG, INHALATION
     Route: 055
  9. ALBUTEROL SULFATE HFA [Suspect]
     Indication: ILL-DEFINED DISORDER
     Dosage: 100 UG AS NEEDED, INHALATION
     Route: 055
  10. ASPIRIN [Suspect]
     Indication: ILL-DEFINED DISORDER
     Dosage: 75 MG
  11. BECLOMETHASONE (BECLOMETHASONE) [Suspect]
     Indication: ILL-DEFINED DISORDER
     Dosage: 50 UG TWICE A DAY, INHALATION
     Route: 055
  12. DEXAMETHASONE [Suspect]
     Indication: ILL-DEFINED DISORDER
     Dosage: 2 MG
  13. GAVISCON [Suspect]
     Indication: ILL-DEFINED DISORDER
     Dosage: 40 ML
  14. DILTIAZEM [Suspect]
     Indication: ILL-DEFINED DISORDER
     Dosage: 120 MG
  15. DOTHIEPIN HYDROCHLORIDE [Suspect]
     Indication: ILL-DEFINED DISORDER
     Dosage: 75 MG
  16. LACTULOSE [Suspect]
     Indication: ILL-DEFINED DISORDER
     Dosage: 3.35 G/5ML
  17. LANSOPRAZOLE [Suspect]
     Indication: ILL-DEFINED DISORDER
     Dosage: 30 MG
  18. METOCLOPRAMIDE [Suspect]
     Indication: ILL-DEFINED DISORDER
     Dosage: 30 MG
  19. OXYCODONE (OXYCODONE) [Suspect]
     Indication: ILL-DEFINED DISORDER
     Dosage: 40 MG
  20. OXYGEN (OXYGEN) [Suspect]
     Indication: ILL-DEFINED DISORDER
     Dosage: INHALATION
     Route: 055
  21. SYMBICORT (BUDESONIDE, FORMOTEROL FUMARATE) [Suspect]
     Indication: ILL-DEFINED DISORDER
     Dosage: 200/6 MCG 1-2 PUFFS (TWICE A DAY), INHALATION
     Route: 055
  22. TEMAZEPAM [Suspect]
     Indication: ILL-DEFINED DISORDER
     Dosage: 10 MG 1-2 NOCTE

REACTIONS (2)
  - LUNG NEOPLASM MALIGNANT [None]
  - MESOTHELIOMA [None]
